FAERS Safety Report 14883927 (Version 1)
Quarter: 2018Q2

REPORT INFORMATION
  Report Type: Spontaneous
  Country: JP (occurrence: JP)
  Receive Date: 20180511
  Receipt Date: 20180511
  Transmission Date: 20180711
  Serious: Yes (Hospitalization)
  Sender: FDA-Public Use
  Company Number: JP-009507513-1804JPN002872J

PATIENT
  Age: 52 Year
  Sex: Female

DRUGS (8)
  1. LENDORMIN D [Concomitant]
     Active Substance: BROTIZOLAM
     Dosage: UNK
     Route: 065
  2. OZEX [Concomitant]
     Active Substance: TOSUFLOXACIN TOSYLATE
     Indication: RHINORRHOEA
     Dosage: UNK
     Route: 048
  3. REFLEX [Concomitant]
     Active Substance: MIRTAZAPINE
     Dosage: UNK
     Route: 065
  4. BENZALIN [Concomitant]
     Active Substance: NITRAZEPAM
     Dosage: UNK
     Route: 065
  5. MIANSERIN HYDROCHLORIDE [Concomitant]
     Active Substance: MIANSERIN HYDROCHLORIDE
     Indication: RHINORRHOEA
     Dosage: UNK
     Route: 048
  6. BELSOMRA [Suspect]
     Active Substance: SUVOREXANT
     Indication: INSOMNIA
     Dosage: 10 MG, QD
     Route: 048
  7. MYSLEE [Concomitant]
     Active Substance: ZOLPIDEM TARTRATE
     Indication: INSOMNIA
     Dosage: 10 MG, QD
     Route: 048
  8. BIO-THREE [Concomitant]
     Active Substance: HERBALS
     Dosage: UNK
     Route: 065

REACTIONS (1)
  - Muscular weakness [Unknown]
